FAERS Safety Report 9960813 (Version 1)
Quarter: 2014Q1

REPORT INFORMATION
  Report Type: Report from Study
  Country: US (occurrence: US)
  Receive Date: 20140305
  Receipt Date: 20140305
  Transmission Date: 20141002
  Serious: Yes (Hospitalization)
  Sender: FDA-Public Use
  Company Number: US-ABBVIE-13P-163-1109342-00

PATIENT
  Age: 41 Year
  Sex: Female

DRUGS (15)
  1. HUMIRA [Suspect]
     Indication: CROHN^S DISEASE
     Dates: end: 201302
  2. HUMIRA [Suspect]
  3. LOPERAMIDE [Concomitant]
     Indication: DIARRHOEA
  4. BUSPIRONE [Concomitant]
     Indication: DEPRESSION
  5. BUSPIRONE [Concomitant]
  6. XANAX [Concomitant]
     Indication: ANXIETY
  7. MERCAPTOPURINE [Concomitant]
     Indication: CROHN^S DISEASE
  8. NEXIUM [Concomitant]
     Indication: GASTROOESOPHAGEAL REFLUX DISEASE
  9. PROZAC [Concomitant]
     Indication: DEPRESSION
  10. MS COTIN [Concomitant]
     Indication: PAIN
  11. OXYCODONE [Concomitant]
     Indication: PAIN
  12. LASIX [Concomitant]
     Indication: FLUID RETENTION
     Dosage: DAILY
  13. WELLBUTRIN [Concomitant]
     Indication: DEPRESSION
  14. COHOSH [Concomitant]
     Indication: PRODUCT USED FOR UNKNOWN INDICATION
  15. D-3 [Concomitant]
     Indication: PRODUCT USED FOR UNKNOWN INDICATION

REACTIONS (3)
  - Hospitalisation [Not Recovered/Not Resolved]
  - Injection site bruising [Unknown]
  - Depression [Unknown]
